FAERS Safety Report 7799382-2 (Version None)
Quarter: 2011Q4

REPORT INFORMATION
  Report Type: 
  Country: None (occurrence: None)
  Receive Date: 20111006
  Receipt Date: 20111003
  Transmission Date: 20120403
  Serious: No
  Sender: FDA-Public Use
  Company Number: US-TEVA-303695USA

PATIENT
  Sex: Female
  Weight: 65.376 kg

DRUGS (3)
  1. ANTIBIOTICS [Concomitant]
     Indication: TOOTH INFECTION
     Dates: start: 20110828, end: 20110906
  2. PLAN B ONE-STEP [Suspect]
     Indication: POST COITAL CONTRACEPTION
     Dosage: 1.5 MILLIGRAM;
     Route: 048
     Dates: start: 20110906, end: 20110906
  3. LEVONORGESTREL [Suspect]
     Indication: POST COITAL CONTRACEPTION
     Route: 048
     Dates: start: 20110909, end: 20110909

REACTIONS (4)
  - NIPPLE PAIN [None]
  - MENSTRUATION IRREGULAR [None]
  - POLLAKIURIA [None]
  - HUNGER [None]
